FAERS Safety Report 7832260-9 (Version None)
Quarter: 2011Q4

REPORT INFORMATION
  Report Type: 
  Country: None (occurrence: None)
  Receive Date: 20111022
  Receipt Date: 20111005
  Transmission Date: 20120403
  Serious: Yes (Hospitalization)
  Sender: FDA-Public Use
  Company Number: US-BAYER-2011-052243

PATIENT
  Age: 34 Year
  Sex: Female
  Weight: 105.5 kg

DRUGS (9)
  1. METFORMIN HCL [Concomitant]
     Indication: DIABETES MELLITUS
     Dosage: 500 MG, BID
     Route: 048
  2. CIPROFLOXACIN [Concomitant]
     Dosage: 500 MG, BID
     Route: 048
     Dates: start: 20080716
  3. YAZ [Suspect]
     Indication: ACNE
     Dosage: UNK
     Dates: start: 20080101
  4. YAZ [Suspect]
     Indication: PREMENSTRUAL SYNDROME
  5. XANAX XR [Concomitant]
     Indication: ANXIETY
     Dosage: 2 MG, UNK
     Route: 048
  6. PRENATAL VITAMINS [VIT C,B5,B12,D2,B3,B6,RETINOL PALMIT,B2,B1 MONO [Concomitant]
     Dosage: UNK UNK, QD
     Route: 048
  7. ZOCOR [Concomitant]
     Indication: BLOOD CHOLESTEROL INCREASED
     Dosage: 40 MG, QD
     Route: 048
  8. XANAX [Concomitant]
     Indication: ANXIETY
     Dosage: 5 MG, PRN
     Route: 048
  9. NORTRIPTYLINE HCL [Concomitant]
     Indication: DEPRESSION
     Dosage: 200 MG, UNK
     Route: 048

REACTIONS (3)
  - CHOLECYSTITIS CHRONIC [None]
  - PAIN [None]
  - GALLBLADDER DISORDER [None]
